FAERS Safety Report 13231893 (Version 1)
Quarter: 2017Q1

REPORT INFORMATION
  Report Type: Spontaneous
  Country: US (occurrence: US)
  Receive Date: 20170214
  Receipt Date: 20170214
  Transmission Date: 20170428
  Serious: Yes (Hospitalization, Other)
  Sender: FDA-Public Use
  Company Number: US-AMAG PHARMACEUTICALS, INC.-AMAG201602195

PATIENT

DRUGS (2)
  1. PRENATAL VITAMINS [Concomitant]
     Active Substance: VITAMINS
     Indication: PRODUCT USED FOR UNKNOWN INDICATION
     Route: 048
  2. MAKENA [Suspect]
     Active Substance: HYDROXYPROGESTERONE CAPROATE
     Indication: ABORTION SPONTANEOUS
     Dosage: 250 MG/ML, WEEKLY
     Route: 030
     Dates: start: 20160808, end: 20160926

REACTIONS (1)
  - Premature delivery [Unknown]

NARRATIVE: CASE EVENT DATE: 20160927
